FAERS Safety Report 8030155-1 (Version None)
Quarter: 2012Q1

REPORT INFORMATION
  Report Type: 
  Country: None (occurrence: None)
  Receive Date: 20120109
  Receipt Date: 20111227
  Transmission Date: 20120608
  Serious: Yes (Other)
  Sender: FDA-Public Use
  Company Number: US-UCBSA-044259

PATIENT
  Age: 56 Year
  Sex: Female
  Weight: 46.2 kg

DRUGS (5)
  1. EPIPEN [Concomitant]
     Indication: HYPERSENSITIVITY
     Dosage: UNKNOWN DOSE
  2. ZITHROMAX [Concomitant]
     Indication: RESPIRATORY TRACT INFECTION
     Dosage: NUMBER OF INTAKES (PER DAY): 2 DOSES DAY 1+ 1 DOSE AFTER +TOTAL DAILY DOSE: 1 A DAY FOR FIVE DAYS
     Route: 048
     Dates: start: 20111011, end: 20111015
  3. VITAMIN D [Concomitant]
     Indication: OSTEOPOROSIS PROPHYLAXIS
     Dosage: STARTED FROM: 2 YEARS: 50000 U
     Route: 048
  4. VITMAMIN B [Concomitant]
     Indication: PERNICIOUS ANAEMIA
     Dosage: STARTED FROM: YEAR OR YEAR HALF: UNKNOWN DOSE
  5. CIMZIA [Suspect]
     Indication: CROHN'S DISEASE
     Route: 058
     Dates: start: 20111018

REACTIONS (7)
  - INJECTION SITE URTICARIA [None]
  - SINUSITIS [None]
  - ORAL CANDIDIASIS [None]
  - PNEUMONIA [None]
  - UPPER RESPIRATORY TRACT INFECTION [None]
  - FUNGAL INFECTION [None]
  - URINARY TRACT INFECTION [None]
